FAERS Safety Report 4470380-X (Version None)
Quarter: 2004Q3

REPORT INFORMATION
  Report Type: 
  Country: None (occurrence: None)
  Receive Date: 20040910
  Receipt Date: 20040617
  Transmission Date: 20050211
  Serious: Yes (Hospitalization)
  Sender: FDA-Public Use
  Company Number: 2004-00090

PATIENT
  Age: 50 Year
  Sex: Male

DRUGS (7)
  1. VELCADE [Suspect]
     Indication: MULTIPLE MYELOMA
     Dosage: 1.3 MG/M2, IV BOLUS; SEE IMAGE
     Route: 040
  2. DIGOXIN [Concomitant]
  3. COREG [Concomitant]
  4. MONOPRIL [Concomitant]
  5. ASPIRIN [Concomitant]
  6. SPIRONOLACTONE [Concomitant]
  7. NEURONTIN [Concomitant]

REACTIONS (3)
  - HYPOTENSION [None]
  - NEUROPATHY PERIPHERAL [None]
  - SYNCOPE [None]
